FAERS Safety Report 11026220 (Version 2)
Quarter: 2015Q3

REPORT INFORMATION
  Report Type: Report from Study
  Country: US (occurrence: US)
  Receive Date: 20150414
  Receipt Date: 20150814
  Transmission Date: 20151125
  Serious: Yes (Other)
  Sender: FDA-Public Use
  Company Number: US-SA-2014SA172307

PATIENT
  Age: 73 Year
  Sex: Female

DRUGS (1)
  1. AUBAGIO [Suspect]
     Active Substance: TERIFLUNOMIDE
     Indication: MULTIPLE SCLEROSIS
     Route: 048
     Dates: start: 20141030, end: 20150501

REACTIONS (5)
  - Alopecia [Unknown]
  - Diarrhoea [Unknown]
  - Abasia [Unknown]
  - Bowel movement irregularity [Unknown]
  - Constipation [Unknown]

NARRATIVE: CASE EVENT DATE: 2014
